FAERS Safety Report 10905666 (Version 1)
Quarter: 2015Q1

REPORT INFORMATION
  Report Type: Report from Study
  Country: US (occurrence: US)
  Receive Date: 20150311
  Receipt Date: 20150311
  Transmission Date: 20150721
  Serious: Yes (Hospitalization)
  Sender: FDA-Public Use
  Company Number: US-SANOFI-AVENTIS-2012SA040989

PATIENT
  Age: 63 Year
  Sex: Male
  Weight: 84.9 kg

DRUGS (21)
  1. UNKNOWDRUG [Concomitant]
     Active Substance: UNSPECIFIED INGREDIENT
  2. ERGOCALCIFEROL. [Concomitant]
     Active Substance: ERGOCALCIFEROL
  3. CELECOXIB. [Concomitant]
     Active Substance: CELECOXIB
  4. LEVALBUTEROL HYDROCHLORIDE. [Concomitant]
     Active Substance: LEVALBUTEROL HYDROCHLORIDE
     Indication: WHEEZING
  5. TIOTROPIUM [Concomitant]
     Active Substance: TIOTROPIUM
  6. LISINOPRIL. [Concomitant]
     Active Substance: LISINOPRIL
  7. FLUOXETINE [Concomitant]
     Active Substance: FLUOXETINE\FLUOXETINE HYDROCHLORIDE
  8. LORATADINE. [Concomitant]
     Active Substance: LORATADINE
  9. NIFEDIPINE. [Concomitant]
     Active Substance: NIFEDIPINE
     Dates: start: 20110208
  10. DOCUSATE [Concomitant]
     Active Substance: DOCUSATE
     Indication: CONSTIPATION
  11. LEVOTHYROXINE [Concomitant]
     Active Substance: LEVOTHYROXINE
  12. PLAVIX [Suspect]
     Active Substance: CLOPIDOGREL BISULFATE
     Indication: ANTIPLATELET THERAPY
     Route: 048
     Dates: start: 20110208
  13. ASPIRIN. [Suspect]
     Active Substance: ASPIRIN
     Indication: ANTIPLATELET THERAPY
  14. ALPRAZOLAM. [Concomitant]
     Active Substance: ALPRAZOLAM
  15. ISOSORBIDE [Concomitant]
     Active Substance: ISOSORBIDE
  16. MOMETASONE [Concomitant]
     Active Substance: MOMETASONE
  17. NICOTINE. [Concomitant]
     Active Substance: NICOTINE
  18. PREGABALIN. [Concomitant]
     Active Substance: PREGABALIN
  19. ALL OTHER THERAPEUTIC PRODUCTS [Suspect]
     Active Substance: UNSPECIFIED INGREDIENT
     Indication: CORONARY ARTERY DISEASE
     Dates: start: 20110208, end: 20110208
  20. ALBUTEROL. [Concomitant]
     Active Substance: ALBUTEROL
  21. BUDESONIDE. [Concomitant]
     Active Substance: BUDESONIDE

REACTIONS (1)
  - Chest pain [Recovered/Resolved]

NARRATIVE: CASE EVENT DATE: 20110524
